FAERS Safety Report 6734371-8 (Version None)
Quarter: 2010Q2

REPORT INFORMATION
  Report Type: 
  Country: None (occurrence: None)
  Receive Date: 20100520
  Receipt Date: 20100514
  Transmission Date: 20101027
  Serious: Yes (Hospitalization, Other)
  Sender: FDA-Public Use
  Company Number: PHHO2009CA10268

PATIENT
  Sex: Female
  Weight: 86 kg

DRUGS (3)
  1. CERTICAN [Suspect]
     Indication: LIVER TRANSPLANT
     Dosage: 0.5 MG, BID
     Route: 048
     Dates: start: 20040910
  2. CERTICAN [Suspect]
     Dosage: UNK
  3. NEORAL [Concomitant]
     Indication: LIVER TRANSPLANT
     Dosage: UNK

REACTIONS (9)
  - ADRENALECTOMY [None]
  - CONCOMITANT DISEASE PROGRESSION [None]
  - ENDOMETRIAL CANCER METASTATIC [None]
  - EXPLORATIVE LAPAROTOMY [None]
  - HEPATIC CANCER METASTATIC [None]
  - IMPAIRED HEALING [None]
  - METASTASES TO ADRENALS [None]
  - METASTASES TO LUNG [None]
  - METASTASES TO PERITONEUM [None]
